FAERS Safety Report 8501342-0 (Version None)
Quarter: 2012Q3

REPORT INFORMATION
  Report Type: 
  Country: None (occurrence: None)
  Receive Date: 20120710
  Receipt Date: 20120628
  Transmission Date: 20120928
  Serious: No
  Sender: FDA-Public Use
  Company Number: US-ASTRAZENECA-2012SE43669

PATIENT
  Age: 68 Year
  Sex: Female
  Weight: 49.9 kg

DRUGS (6)
  1. AMLODIPINE [Concomitant]
     Indication: BLOOD PRESSURE ABNORMAL
  2. GLIPIZIDE [Concomitant]
     Indication: DIABETES MELLITUS
  3. CRESTOR [Suspect]
     Indication: BLOOD CHOLESTEROL INCREASED
     Route: 048
     Dates: start: 20120605
  4. METFORMIN HCL [Concomitant]
     Indication: DIABETES MELLITUS
  5. CRESTOR [Suspect]
     Route: 048
     Dates: start: 20120618
  6. MICARDIS [Concomitant]
     Indication: BLOOD PRESSURE ABNORMAL

REACTIONS (7)
  - SWELLING FACE [None]
  - INTENTIONAL DRUG MISUSE [None]
  - OEDEMA PERIPHERAL [None]
  - ERYTHEMA [None]
  - HYPOAESTHESIA [None]
  - TREMOR [None]
  - LIP SWELLING [None]
